FAERS Safety Report 6862260-7 (Version None)
Quarter: 2010Q3

REPORT INFORMATION
  Report Type: 
  Country: None (occurrence: None)
  Receive Date: 20100721
  Receipt Date: 20100708
  Transmission Date: 20110219
  Serious: Yes (Hospitalization)
  Sender: FDA-Public Use
  Company Number: US-ELI_LILLY_AND_COMPANY-US201007002271

PATIENT
  Sex: Female

DRUGS (5)
  1. FORTEO [Suspect]
     Dosage: 20 UG, DAILY (1/D)
  2. ANTIHYPERTENSIVES [Concomitant]
  3. PREDNISONE [Concomitant]
  4. FUROSEMIDE [Concomitant]
  5. ANTIBIOTICS [Concomitant]

REACTIONS (3)
  - ABDOMINAL PAIN [None]
  - DYSPNOEA [None]
  - NEPHROLITHIASIS [None]
